FAERS Safety Report 4879318-4 (Version None)
Quarter: 2006Q1

REPORT INFORMATION
  Report Type: 
  Country: None (occurrence: None)
  Receive Date: 20060112
  Receipt Date: 20050715
  Transmission Date: 20060701
  Serious: Yes (Hospitalization, Other)
  Sender: FDA-Public Use
  Company Number: US-MERCK-0507USA02110

PATIENT
  Age: 86 Year
  Sex: Female
  Weight: 59 kg

DRUGS (2)
  1. VIOXX [Suspect]
     Indication: OSTEOARTHRITIS
     Route: 048
     Dates: start: 19980101, end: 20000701
  2. VIOXX [Suspect]
     Indication: ARTHRITIS
     Route: 048
     Dates: start: 19980101, end: 20000701

REACTIONS (25)
  - ANGIOPATHY [None]
  - ATRIAL FIBRILLATION [None]
  - BLOOD PRESSURE SYSTOLIC INCREASED [None]
  - CEREBRAL HAEMORRHAGE [None]
  - CEREBROVASCULAR ACCIDENT [None]
  - COMPUTERISED TOMOGRAM ABNORMAL [None]
  - DIARRHOEA [None]
  - DIARRHOEA HAEMORRHAGIC [None]
  - DILATATION ATRIAL [None]
  - DISORIENTATION [None]
  - EXTENSOR PLANTAR RESPONSE [None]
  - FACIAL PALSY [None]
  - FAECES DISCOLOURED [None]
  - HAEMORRHAGE [None]
  - HEMIPLEGIA [None]
  - PERITONSILLAR ABSCESS [None]
  - PHARYNGITIS [None]
  - POSTNASAL DRIP [None]
  - SENSORY LOSS [None]
  - SYNCOPE [None]
  - TACHYCARDIA [None]
  - UPPER LIMB FRACTURE [None]
  - URINARY TRACT INFECTION [None]
  - VOMITING [None]
  - WHEELCHAIR USER [None]
